FAERS Safety Report 26209317 (Version 1)
Quarter: 2025Q4

REPORT INFORMATION
  Report Type: Report from Study
  Country: CA (occurrence: CA)
  Receive Date: 20251229
  Receipt Date: 20251229
  Transmission Date: 20260117
  Serious: Yes (Hospitalization, Other)
  Sender: PFIZER
  Company Number: CA-PFIZER INC-202500175949

PATIENT
  Age: 47 Year
  Sex: Female

DRUGS (2)
  1. ADALIMUMAB [Suspect]
     Active Substance: ADALIMUMAB
     Indication: Hidradenitis
     Dosage: 40 MG, WEEKLY
     Route: 058
  2. ADALIMUMAB [Suspect]
     Active Substance: ADALIMUMAB
     Dosage: 160 MG; SOLUTION FOR INJECTION
     Route: 058

REACTIONS (9)
  - Dizziness [Unknown]
  - Gastrointestinal infection [Unknown]
  - Nausea [Unknown]
  - Nephrolithiasis [Unknown]
  - Pain [Unknown]
  - Urinary tract infection [Unknown]
  - Therapy interrupted [Unknown]
  - Intentional product use issue [Unknown]
  - Intentional dose omission [Unknown]
